FAERS Safety Report 6086002-0 (Version None)
Quarter: 2009Q1

REPORT INFORMATION
  Report Type: 
  Country: None (occurrence: None)
  Receive Date: 20090220
  Receipt Date: 20090210
  Transmission Date: 20090719
  Serious: Yes (Death)
  Sender: FDA-Public Use
  Company Number: PR-BAXTER-2009BH002322

PATIENT
  Age: 62 Year
  Sex: Female

DRUGS (1)
  1. HEPARIN SODIUM INJECTION [Suspect]
     Indication: THROMBOSIS PROPHYLAXIS
     Route: 065
     Dates: start: 20051101, end: 20070521

REACTIONS (8)
  - ANOXIC ENCEPHALOPATHY [None]
  - CEREBRAL INFARCTION [None]
  - CHEST PAIN [None]
  - HEADACHE [None]
  - MEMORY IMPAIRMENT [None]
  - OEDEMA PERIPHERAL [None]
  - PRURITUS [None]
  - RENAL FAILURE CHRONIC [None]
